FAERS Safety Report 15095891 (Version 1)
Quarter: 2018Q2

REPORT INFORMATION
  Report Type: Spontaneous
  Country: US (occurrence: UM)
  Receive Date: 20180609
  Receipt Date: 20180609
  Transmission Date: 20180711
  Serious: Yes (Life-Threatening, Disabling)
  Sender: FDA-Public Use
  Company Number: None

PATIENT
  Age: 60 Year
  Sex: Female
  Weight: 56.25 kg

DRUGS (11)
  1. IMITREX [Concomitant]
     Active Substance: SUMATRIPTAN SUCCINATE
  2. COLLAGEN [Concomitant]
     Active Substance: COLLAGEN
  3. VITAMIN E [Concomitant]
     Active Substance: .ALPHA.-TOCOPHEROL
  4. OXYCODONE [Concomitant]
     Active Substance: OXYCODONE
  5. PROZAC [Concomitant]
     Active Substance: FLUOXETINE HYDROCHLORIDE
  6. VITAMIN D [Concomitant]
     Active Substance: CHOLECALCIFEROL
  7. FLEXERIL [Concomitant]
     Active Substance: CYCLOBENZAPRINE HYDROCHLORIDE
  8. MAGNESIUM [Concomitant]
     Active Substance: MAGNESIUM
  9. FISH OIL [Concomitant]
     Active Substance: FISH OIL
  10. LEVOFLOXACIN. [Suspect]
     Active Substance: LEVOFLOXACIN
     Indication: ANIMAL BITE
     Dosage: ?          QUANTITY:10 DF DOSAGE FORM;?
     Route: 048
     Dates: start: 20150907, end: 20170912
  11. XANAX [Concomitant]
     Active Substance: ALPRAZOLAM

REACTIONS (16)
  - Vision blurred [None]
  - Femur fracture [None]
  - Neuropathy peripheral [None]
  - Arthritis [None]
  - Confusional state [None]
  - Osteoporosis [None]
  - Gait inability [None]
  - Hallucination [None]
  - Pain in extremity [None]
  - Impaired quality of life [None]
  - Pain [None]
  - Oedema [None]
  - Swelling [None]
  - Restless legs syndrome [None]
  - Alopecia [None]
  - General physical health deterioration [None]

NARRATIVE: CASE EVENT DATE: 20150907
